FAERS Safety Report 9631083 (Version 2)
Quarter: 2013Q4

REPORT INFORMATION
  Report Type: Spontaneous
  Country: CA (occurrence: None)
  Receive Date: 20131015
  Receipt Date: 20131204
  Transmission Date: 20140711
  Serious: Yes (Hospitalization, Other)
  Sender: FDA-Public Use
  Company Number: 2013-003190

PATIENT
  Age: 70 Year
  Sex: Male
  Weight: 81.2 kg

DRUGS (12)
  1. ASACOL [Suspect]
     Indication: COLITIS ULCERATIVE
     Route: 048
  2. WARFARIN (WARFARIN) [Concomitant]
  3. SYNTHROID (LEVOTHYROXINE SODIUM) [Concomitant]
  4. FOLIC ACID (FOLIC ACID) [Concomitant]
  5. VITAMIN B COMPLEX (VITAMIN B COMPLEX) [Concomitant]
  6. EURO-FER (FERROUS FUMARATE) [Concomitant]
  7. TOLOXIN /00017701/ (DIGOXIN) [Concomitant]
  8. CRESTOR (ROSUVASTATIN CALCIUM) [Concomitant]
  9. BISOPROLOL (BISOPROLOL) [Concomitant]
  10. ADVAIR (FLUTICASONE PROPIONATE, SALMETEROL XINAFOATE) [Concomitant]
  11. TRAZODONE (TRAZODONE) [Concomitant]
  12. PANTOPRAZOLE (PANTOPRAZOLE) [Concomitant]

REACTIONS (2)
  - Glomerulonephritis [None]
  - Blood creatinine increased [None]
